FAERS Safety Report 13350148 (Version 1)
Quarter: 2017Q1

REPORT INFORMATION
  Report Type: Spontaneous
  Country: US (occurrence: US)
  Receive Date: 20170317
  Receipt Date: 20170317
  Transmission Date: 20170429
  Serious: Yes (Hospitalization)
  Sender: FDA-Public Use
  Company Number: None

PATIENT
  Age: 74 Year
  Sex: Female

DRUGS (1)
  1. INVANZ [Suspect]
     Active Substance: ERTAPENEM SODIUM
     Indication: PERITONEAL ABSCESS
     Dosage: 1000 MG Q24H IV
     Route: 042
     Dates: start: 20170304, end: 20170307

REACTIONS (2)
  - Condition aggravated [None]
  - Seizure [None]

NARRATIVE: CASE EVENT DATE: 20170307
